FAERS Safety Report 6148380-3 (Version None)
Quarter: 2009Q2

REPORT INFORMATION
  Report Type: 
  Country: None (occurrence: None)
  Receive Date: 20090402
  Receipt Date: 20090129
  Transmission Date: 20091009
  Serious: No
  Sender: FDA-Public Use
  Company Number: 1000004214

PATIENT
  Age: 60 Year
  Sex: Male
  Weight: 114.3 kg

DRUGS (4)
  1. BYSTOLIC [Suspect]
     Indication: HYPERTENSION
     Dosage: 5 MG (5 MG, 1 IN 1 D), ORAL
     Route: 048
     Dates: start: 20090107, end: 20090115
  2. ASPIRIN [Concomitant]
  3. CRESTOR [Concomitant]
  4. OMEPRAZOLE [Concomitant]

REACTIONS (1)
  - HYPERHIDROSIS [None]
